FAERS Safety Report 9131200 (Version 1)
Quarter: 2013Q1

REPORT INFORMATION
  Report Type: Spontaneous
  Country: US (occurrence: US)
  Receive Date: 20130301
  Receipt Date: 20130301
  Transmission Date: 20140127
  Serious: Yes (Other)
  Sender: FDA-Public Use
  Company Number: PHEH2012US003905

PATIENT
  Age: 80 None
  Sex: Female

DRUGS (11)
  1. RECLAST [Suspect]
     Dosage: UNK UKN, UNK
     Route: 042
     Dates: start: 20110207
  2. RECLAST [Suspect]
     Dosage: UNK UKN, UNK
     Route: 042
     Dates: start: 20120210
  3. ATENOLOL [Concomitant]
     Dosage: 25 MG, UNK
  4. LIBRAX [Concomitant]
     Dosage: UKN
  5. NEXIUM 1-2-3 [Concomitant]
     Dosage: UKN
  6. VALIUM [Concomitant]
     Dosage: UKN
  7. CALCIUM [Concomitant]
     Dosage: UKN
  8. VITAMIN D [Concomitant]
  9. PRENATAL VITAMINS [Concomitant]
     Dosage: UNK UKN, UNK
  10. B12-VITAMIIN [Concomitant]
  11. B KOMPLEX//VITAMIN B COMPLEX [Concomitant]
     Dosage: UNK UKN, UNK

REACTIONS (12)
  - Urinary tract infection [Unknown]
  - Localised infection [Unknown]
  - Sinusitis [Unknown]
  - Tooth infection [Unknown]
  - Feeling abnormal [Unknown]
  - Osteopenia [Unknown]
  - Abdominal pain upper [Unknown]
  - Influenza like illness [Unknown]
  - Nausea [Unknown]
  - Headache [Unknown]
  - Arthralgia [Unknown]
  - Pain [Unknown]
